FAERS Safety Report 5386418-1 (Version None)
Quarter: 2007Q3

REPORT INFORMATION
  Report Type: 
  Country: None (occurrence: None)
  Receive Date: 20070710
  Receipt Date: 20070625
  Transmission Date: 20080115
  Serious: Yes (Life-Threatening)
  Sender: FDA-Public Use
  Company Number: FR-1163260

PATIENT
  Age: 72 Year
  Sex: Male
  Weight: 73 kg

DRUGS (2)
  1. TRAVATAN [Suspect]
     Indication: GLAUCOMA
     Dosage: EYE DROPS, SOLUTION 1 GTT QD OPHTHALMIC
     Route: 047
     Dates: start: 20070401, end: 20070601
  2. PREVISCAN            (FLUINDIONE) [Concomitant]

REACTIONS (1)
  - BRADYCARDIA [None]
